FAERS Safety Report 6063774-2 (Version None)
Quarter: 2009Q1

REPORT INFORMATION
  Report Type: 
  Country: None (occurrence: None)
  Receive Date: 20090130
  Receipt Date: 20090116
  Transmission Date: 20090719
  Serious: Yes (Death)
  Sender: FDA-Public Use
  Company Number: 040269

PATIENT
  Age: 69 Year
  Sex: Male

DRUGS (14)
  1. EXTENDED PHENYTOIN SODIUM [Suspect]
     Dosage: ORAL
     Route: 048
  2. ALBUTEROL [Suspect]
     Dosage: ORAL
     Route: 048
  3. LISINOPRIL [Suspect]
     Dosage: ORAL
     Route: 048
  4. RANITIDINE HYDROCHLORIDE [Suspect]
     Dosage: ORAL
     Route: 048
  5. AMLODIPINE [Suspect]
     Dosage: ORAL
     Route: 048
  6. CLONIDINE [Suspect]
     Dosage: ORAL
     Route: 048
  7. METOPROLOL TARTRATE [Suspect]
     Dosage: ORAL
     Route: 048
  8. SALICYLATE(SALICYLATE) [Suspect]
     Dosage: ORAL
     Route: 048
  9. TIAGABINE HCL [Suspect]
     Dosage: ORAL
     Route: 048
  10. DIURETICS() [Suspect]
     Dosage: ORAL
     Route: 048
  11. CLOPIDOGREL [Suspect]
     Dosage: ORAL
     Route: 048
  12. EZETIMIBE [Suspect]
     Dosage: ORAL
     Route: 048
  13. LORAZEPAM [Suspect]
     Dosage: ORAL
     Route: 048
  14. ATORVASTATIN CALCIUM [Suspect]
     Dosage: ORAL
     Route: 048

REACTIONS (2)
  - COMPLETED SUICIDE [None]
  - DRUG TOXICITY [None]
